FAERS Safety Report 17441687 (Version 3)
Quarter: 2020Q2

REPORT INFORMATION
  Report Type: Spontaneous
  Country: FR (occurrence: FR)
  Receive Date: 20200220
  Receipt Date: 20200429
  Transmission Date: 20200713
  Serious: Yes (Hospitalization, Other)
  Sender: FDA-Public Use
  Company Number: NVSC2020FR047755

PATIENT
  Age: 58 Year
  Sex: Female

DRUGS (5)
  1. DARUNAVIR [Interacting]
     Active Substance: DARUNAVIR
     Indication: ANTIRETROVIRAL THERAPY
     Dosage: UNK
     Route: 065
  2. RITONAVIR. [Interacting]
     Active Substance: RITONAVIR
     Indication: ANTIRETROVIRAL THERAPY
  3. DARUNAVIR [Interacting]
     Active Substance: DARUNAVIR
     Indication: HIV INFECTION
     Dosage: 800 MILLIGRAM
     Route: 065
  4. QUETIAPINE. [Suspect]
     Active Substance: QUETIAPINE
     Indication: BIPOLAR DISORDER
     Dosage: 150 MILLIGRAM, QD
     Route: 065
  5. RITONAVIR. [Interacting]
     Active Substance: RITONAVIR
     Indication: HIV INFECTION
     Dosage: 100 MG (BOOSTED BY 100 MG)
     Route: 065

REACTIONS (7)
  - Syncope [Unknown]
  - Contraindicated product administered [Unknown]
  - Overdose [Unknown]
  - Electrocardiogram QT prolonged [Unknown]
  - Psychomotor skills impaired [Unknown]
  - Psychomotor retardation [Unknown]
  - Drug interaction [Unknown]
